FAERS Safety Report 23860977 (Version 1)
Quarter: 2024Q2

REPORT INFORMATION
  Report Type: Spontaneous
  Country: US (occurrence: US)
  Receive Date: 20240516
  Receipt Date: 20240516
  Transmission Date: 20240715
  Serious: Yes (Other)
  Sender: FDA-Public Use
  Company Number: US-PADAGIS-2024PAD00820

PATIENT

DRUGS (18)
  1. CYCLOSPORINE [Suspect]
     Active Substance: CYCLOSPORINE
     Indication: Acute febrile neutrophilic dermatosis
     Dosage: UNK
     Route: 065
  2. CYCLOSPORINE [Suspect]
     Active Substance: CYCLOSPORINE
     Dosage: UNK
     Route: 065
  3. LENALIDOMIDE [Suspect]
     Active Substance: LENALIDOMIDE
     Indication: Acute febrile neutrophilic dermatosis
     Dosage: UNK
     Route: 065
  4. DAPSONE [Suspect]
     Active Substance: DAPSONE
     Indication: Acute febrile neutrophilic dermatosis
     Dosage: UNK
     Route: 065
  5. COLCHICINE [Suspect]
     Active Substance: COLCHICINE
     Indication: Acute febrile neutrophilic dermatosis
     Dosage: UNK
     Route: 065
  6. ANAKINRA [Suspect]
     Active Substance: ANAKINRA
     Indication: Acute febrile neutrophilic dermatosis
     Dosage: UNK
     Route: 065
  7. SECUKINUMAB [Suspect]
     Active Substance: SECUKINUMAB
     Indication: Acute febrile neutrophilic dermatosis
     Dosage: UNK
     Route: 065
  8. RITUXIMAB [Suspect]
     Active Substance: RITUXIMAB
     Indication: Acute febrile neutrophilic dermatosis
     Dosage: UNK
     Route: 065
  9. RITUXIMAB [Suspect]
     Active Substance: RITUXIMAB
     Dosage: 15 MG, BID
     Route: 065
  10. HUMAN IMMUNOGLOBULIN G [Suspect]
     Active Substance: HUMAN IMMUNOGLOBULIN G
     Indication: Acute febrile neutrophilic dermatosis
     Dosage: UNK
     Route: 042
  11. PREDNISONE [Concomitant]
     Active Substance: PREDNISONE
     Indication: Acute febrile neutrophilic dermatosis
     Dosage: 20 MG, QD
     Route: 065
  12. PREDNISONE [Concomitant]
     Active Substance: PREDNISONE
     Dosage: DOSE DECREASE
     Route: 065
  13. AZACITIDINE [Concomitant]
     Active Substance: AZACITIDINE
     Indication: Myelodysplastic syndrome
     Dosage: 6 CYCLES
     Route: 065
  14. DECITABINE [Concomitant]
     Active Substance: DECITABINE
     Indication: Myelodysplastic syndrome
     Dosage: UNK
     Route: 065
  15. CEDAZURIDINE [Concomitant]
     Active Substance: CEDAZURIDINE
     Indication: Myelodysplastic syndrome
     Dosage: UNK
     Route: 065
  16. THALIDOMIDE [Concomitant]
     Active Substance: THALIDOMIDE
     Indication: Acute febrile neutrophilic dermatosis
     Dosage: UNK
     Route: 065
  17. SULFASALAZINE [Concomitant]
     Active Substance: SULFASALAZINE
     Indication: Acute febrile neutrophilic dermatosis
     Dosage: UNK
     Route: 065
  18. METHYLPREDNISOLONE [Concomitant]
     Active Substance: METHYLPREDNISOLONE
     Indication: Acute febrile neutrophilic dermatosis
     Dosage: 60 MG
     Route: 042

REACTIONS (3)
  - Drug ineffective for unapproved indication [Unknown]
  - Therapy partial responder [Unknown]
  - Adverse drug reaction [Unknown]
